FAERS Safety Report 8684051 (Version 2)
Quarter: 2015Q4

REPORT INFORMATION
  Report Type: Spontaneous
  Country: US (occurrence: None)
  Receive Date: 20120711
  Receipt Date: 20151112
  Transmission Date: 20160305
  Serious: Yes (Other)
  Sender: FDA-Public Use
  Company Number: ADR-2012-01247

PATIENT
  Age: 45 Year
  Sex: Male

DRUGS (1)
  1. LIORESAL [Suspect]
     Active Substance: BACLOFEN
     Indication: MUSCLE SPASTICITY
     Dosage: ^64-68^

REACTIONS (13)
  - Muscular weakness [None]
  - Pollakiuria [None]
  - Fall [None]
  - Condition aggravated [None]
  - Pain [None]
  - Muscle spasticity [None]
  - No therapeutic response [None]
  - Peroneal nerve palsy [None]
  - Dizziness [None]
  - Nausea [None]
  - Movement disorder [None]
  - Urinary incontinence [None]
  - Erectile dysfunction [None]
